FAERS Safety Report 10082557 (Version 1)
Quarter: 2014Q2

REPORT INFORMATION
  Report Type: Spontaneous
  Country: FR (occurrence: FR)
  Receive Date: 20140416
  Receipt Date: 20140416
  Transmission Date: 20141212
  Serious: Yes (Hospitalization)
  Sender: FDA-Public Use
  Company Number: FR-DSJP-DSE-2014-105206

PATIENT
  Sex: 0

DRUGS (3)
  1. OLMETEC [Suspect]
     Indication: PRODUCT USED FOR UNKNOWN INDICATION
     Dosage: 80 DF, SINGLE
     Route: 048
     Dates: start: 201402, end: 201402
  2. ALPRAZOLAM [Suspect]
     Indication: PRODUCT USED FOR UNKNOWN INDICATION
     Dosage: 120 DF, SINGLE
     Route: 048
     Dates: start: 201402, end: 201402
  3. LORAZEPAM [Suspect]
     Indication: PRODUCT USED FOR UNKNOWN INDICATION
     Dosage: 30 DF, SINGLE
     Route: 048
     Dates: start: 201402, end: 201402

REACTIONS (2)
  - Somnolence [Recovered/Resolved]
  - Amnestic disorder [Recovered/Resolved]
